FAERS Safety Report 5064155-0 (Version None)
Quarter: 2006Q3

REPORT INFORMATION
  Report Type: 
  Country: None (occurrence: None)
  Receive Date: 20060728
  Receipt Date: 20051111
  Transmission Date: 20061208
  Serious: No
  Sender: FDA-Public Use
  Company Number: US-GLAXOSMITHKLINE-A0581934A

PATIENT
  Age: 5 Year
  Sex: Female

DRUGS (1)
  1. ZANTAC [Suspect]
     Dosage: 5CC TWICE PER DAY
     Route: 048
     Dates: start: 20051109

REACTIONS (2)
  - DYSGEUSIA [None]
  - TREATMENT NONCOMPLIANCE [None]
